FAERS Safety Report 5925491-6 (Version None)
Quarter: 2008Q4

REPORT INFORMATION
  Report Type: 
  Country: None (occurrence: None)
  Receive Date: 20081021
  Receipt Date: 20081013
  Transmission Date: 20090506
  Serious: Yes (Death)
  Sender: FDA-Public Use
  Company Number: PHBS2008BR06041

PATIENT
  Age: 42 Year
  Sex: Female

DRUGS (1)
  1. CYCLOSPORINE [Suspect]
     Indication: RHEUMATOID ARTHRITIS

REACTIONS (5)
  - FELTY'S SYNDROME [None]
  - PHARYNGITIS [None]
  - SEPTIC SHOCK [None]
  - SKIN INFECTION [None]
  - URINARY TRACT INFECTION [None]
